FAERS Safety Report 8944415 (Version 2)
Quarter: 2013Q1

REPORT INFORMATION
  Report Type: Spontaneous
  Country: US (occurrence: US)
  Receive Date: 20121204
  Receipt Date: 20130102
  Transmission Date: 20140127
  Serious: No
  Sender: FDA-Public Use
  Company Number: US-AMGEN-USASP2012062598

PATIENT
  Age: 71 Year
  Sex: Female

DRUGS (15)
  1. ENBREL [Suspect]
     Indication: RHEUMATOID ARTHRITIS
     Dosage: 50 MG, QWK
     Route: 058
     Dates: start: 20120316
  2. ADVAIR HFA 115-21 [Concomitant]
     Dosage: 2 PUFFS, BID
     Dates: start: 20120911
  3. ALPRAZOLAM [Concomitant]
     Dosage: 0.5 MG, EVERY EIGHT HOURS, AS NEEDED
     Dates: start: 20100816
  4. CARAFATE [Concomitant]
     Dosage: UNK UNK, BID
  5. ESCITALOPRAM [Concomitant]
     Dosage: 20 MG, QD
     Dates: start: 20120702
  6. LEXAPRO [Concomitant]
     Dosage: 20 MG, QD
     Route: 048
  7. NYSTATIN [Concomitant]
     Dosage: 5 ML, TID
     Dates: start: 20120911
  8. OXYBUTYNIN CHLORIDE [Concomitant]
     Dosage: 5 MG, QD
     Dates: start: 20120725
  9. PANTOPRAZOLE [Concomitant]
     Dosage: 40 MG, BID
     Route: 048
  10. PREDNISONE [Concomitant]
     Dosage: 3 TABLETS TWICE DAILY, QD
     Route: 048
  11. SYNTHROID [Concomitant]
     Dosage: 75 MCG, QD
     Route: 048
     Dates: start: 20111018
  12. MYCOPHENOLATE MOFETIL [Concomitant]
     Indication: INTERSTITIAL LUNG DISEASE
     Dosage: 1500 MG, BID
     Dates: start: 20100428
  13. OXYGEN [Concomitant]
     Indication: INTERSTITIAL LUNG DISEASE
     Dosage: 0.5 LITER HS
  14. DIOVAN HCT [Concomitant]
     Indication: HYPERTENSION
     Dosage: 80-12.25MG, QD
     Route: 048
  15. FLUTICASONE PROPIONATE [Concomitant]
     Indication: DYSPNOEA
     Dosage: 2 SPRAYS IN EACH NOSTRIL ONCE A DAY, QD
     Dates: start: 20110719

REACTIONS (4)
  - Interstitial lung disease [Not Recovered/Not Resolved]
  - Injection site pain [Not Recovered/Not Resolved]
  - Injection site erythema [Not Recovered/Not Resolved]
  - Injection site bruising [Not Recovered/Not Resolved]
